FAERS Safety Report 21392505 (Version 2)
Quarter: 2022Q4

REPORT INFORMATION
  Report Type: Spontaneous
  Country: US (occurrence: US)
  Receive Date: 20220929
  Receipt Date: 20221014
  Transmission Date: 20230112
  Serious: Yes (Life-Threatening, Hospitalization)
  Sender: FDA-Public Use
  Company Number: US-TEVA-2022-US-2076332

PATIENT
  Age: 63 Year
  Sex: Male

DRUGS (15)
  1. IBUPROFEN [Suspect]
     Active Substance: IBUPROFEN
     Indication: Product used for unknown indication
     Route: 065
  2. PROPOFOL [Suspect]
     Active Substance: PROPOFOL
     Indication: Sedative therapy
     Route: 042
  3. PROPOFOL [Suspect]
     Active Substance: PROPOFOL
     Indication: Sedative therapy
     Dosage: 86400 UG/KG DAILY;
     Route: 042
  4. FENTANYL [Suspect]
     Active Substance: FENTANYL
     Indication: Sedative therapy
     Route: 065
  5. DIPHENHYDRAMINE [Suspect]
     Active Substance: DIPHENHYDRAMINE
     Indication: Product used for unknown indication
     Dosage: 200 MILLIGRAM DAILY; RECEIVED TOTAL OF 11 DOSES OVER 3 DAYS; 550MG
     Route: 042
  6. MIDAZOLAM [Concomitant]
     Active Substance: MIDAZOLAM
     Indication: Sedative therapy
     Route: 065
  7. METHYLPREDNISOLONE [Concomitant]
     Active Substance: METHYLPREDNISOLONE
     Indication: Angioedema
     Dosage: 500 MILLIGRAM DAILY;
     Route: 042
  8. RANITIDINE [Concomitant]
     Active Substance: RANITIDINE
     Indication: Angioedema
     Dosage: 150 MILLIGRAM DAILY;
     Route: 042
  9. LORATADINE [Concomitant]
     Active Substance: LORATADINE
     Indication: Product used for unknown indication
     Route: 065
  10. METFORMIN [Concomitant]
     Active Substance: METFORMIN HYDROCHLORIDE
     Indication: Product used for unknown indication
     Route: 065
  11. OMEPRAZOLE [Concomitant]
     Active Substance: OMEPRAZOLE
     Indication: Product used for unknown indication
     Route: 065
  12. OXYBUTYNIN [Concomitant]
     Active Substance: OXYBUTYNIN
     Indication: Product used for unknown indication
     Route: 065
  13. PRAVASTATIN [Concomitant]
     Active Substance: PRAVASTATIN
     Indication: Product used for unknown indication
     Route: 065
  14. EPINEPHRINE [Concomitant]
     Active Substance: EPINEPHRINE
     Indication: Product used for unknown indication
     Route: 058
  15. ALBUTEROL [Concomitant]
     Active Substance: ALBUTEROL
     Indication: Angioedema
     Route: 050

REACTIONS (3)
  - Anaphylactic reaction [Unknown]
  - Conduction disorder [Recovered/Resolved]
  - Electrocardiogram abnormal [Recovered/Resolved]
